FAERS Safety Report 5871728-1 (Version None)
Quarter: 2008Q3

REPORT INFORMATION
  Report Type: 
  Country: None (occurrence: None)
  Receive Date: 20080904
  Receipt Date: 20080904
  Transmission Date: 20090109
  Serious: Yes (Other)
  Sender: FDA-Public Use
  Company Number: None

PATIENT
  Age: 40 Year
  Sex: Female
  Weight: 86.1834 kg

DRUGS (4)
  1. TOPROL-XL [Suspect]
     Indication: HYPERTENSION
     Dosage: 50MG QD ORAL
     Route: 048
  2. VITAMINS -CALCIUM, B12, OMEGA 3, VIT. C- [Concomitant]
  3. BIRTH CONTROL PILLS [Concomitant]
  4. VASATEC [Concomitant]

REACTIONS (9)
  - AMENORRHOEA [None]
  - ARTHRALGIA [None]
  - DYSPNOEA [None]
  - HEART RATE DECREASED [None]
  - HYPERHIDROSIS [None]
  - HYPOAESTHESIA [None]
  - JOINT STIFFNESS [None]
  - PAIN [None]
  - WEIGHT INCREASED [None]
